FAERS Safety Report 5799620-1 (Version None)
Quarter: 2008Q3

REPORT INFORMATION
  Report Type: 
  Country: None (occurrence: None)
  Receive Date: 20080703
  Receipt Date: 20080626
  Transmission Date: 20090109
  Serious: Yes (Other)
  Sender: FDA-Public Use
  Company Number: US-PURDUE-USA_2008_0033594

PATIENT
  Sex: Male

DRUGS (2)
  1. OXYCONTIN [Suspect]
     Indication: NECK PAIN
     Dosage: 80 MG, SINGLE
  2. OXYCONTIN [Suspect]
     Dosage: 40 MG, Q12H

REACTIONS (4)
  - CARDIAC VALVE DISEASE [None]
  - HYPERHIDROSIS [None]
  - INCORRECT DOSE ADMINISTERED [None]
  - MALAISE [None]
